FAERS Safety Report 24632595 (Version 1)
Quarter: 2024Q4

REPORT INFORMATION
  Report Type: Spontaneous
  Country: US (occurrence: US)
  Receive Date: 20241118
  Receipt Date: 20241118
  Transmission Date: 20250114
  Serious: No
  Sender: ABBVIE
  Company Number: US-ABBVIE-5997824

PATIENT
  Age: 63 Year
  Sex: Female

DRUGS (1)
  1. HUMIRA [Suspect]
     Active Substance: ADALIMUMAB
     Indication: Colitis microscopic
     Dosage: FORM STRENGTH: 80MG
     Route: 058

REACTIONS (3)
  - Off label use [Not Recovered/Not Resolved]
  - Device issue [Not Recovered/Not Resolved]
  - Wrong technique in device usage process [Not Recovered/Not Resolved]

NARRATIVE: CASE EVENT DATE: 20241107
